FAERS Safety Report 5879815-9 (Version None)
Quarter: 2008Q3

REPORT INFORMATION
  Report Type: 
  Country: None (occurrence: None)
  Receive Date: 20080911
  Receipt Date: 20080911
  Transmission Date: 20090109
  Serious: Yes (Other)
  Sender: FDA-Public Use
  Company Number: None

PATIENT
  Age: 75 Year
  Sex: Male
  Weight: 68.0396 kg

DRUGS (1)
  1. ARANESP [Suspect]
     Indication: ANAEMIA
     Dosage: 1 EVERY 2 WEEKS
     Dates: start: 20070801, end: 20071001

REACTIONS (2)
  - URINARY INCONTINENCE [None]
  - VISION BLURRED [None]
